FAERS Safety Report 8245215-X (Version None)
Quarter: 2012Q1

REPORT INFORMATION
  Report Type: 
  Country: None (occurrence: None)
  Receive Date: 20120329
  Receipt Date: 20120316
  Transmission Date: 20120608
  Serious: Yes (Other)
  Sender: FDA-Public Use
  Company Number: US-SPECTRUM PHARMACEUTICALS, INC.-12-F-US-00051

PATIENT

DRUGS (5)
  1. DEXAMETHASONE SODIUM PHOSPHATE [Concomitant]
     Indication: PREMEDICATION
     Dosage: 10 MG, SINGLE
     Route: 042
  2. FUSILEV [Suspect]
     Indication: COLON CANCER METASTATIC
     Dosage: 400 MG, EVERY TWO WEEKS
     Route: 042
     Dates: start: 20120215
  3. FLUOROURACIL [Suspect]
     Indication: COLON CANCER METASTATIC
     Dosage: UNK
     Route: 065
  4. OXALIPLATIN [Suspect]
     Indication: COLON CANCER METASTATIC
     Dosage: UNK
     Route: 065
  5. ZOFRAN [Concomitant]
     Indication: PREMEDICATION
     Dosage: 24 MG, SINGLE
     Route: 042

REACTIONS (2)
  - URTICARIA [None]
  - PRURITUS [None]
